FAERS Safety Report 12998214 (Version 1)
Quarter: 2016Q4

REPORT INFORMATION
  Report Type: Spontaneous
  Country: US (occurrence: US)
  Receive Date: 20161205
  Receipt Date: 20161205
  Transmission Date: 20170207
  Serious: No
  Sender: FDA-Public Use
  Company Number: US-PFIZER INC-2016561390

PATIENT
  Sex: Female

DRUGS (1)
  1. XELJANZ XR [Suspect]
     Active Substance: TOFACITINIB CITRATE
     Dosage: 11 MG, UNK

REACTIONS (19)
  - Wheezing [Unknown]
  - Peripheral swelling [Unknown]
  - Blood pressure increased [Unknown]
  - Arthralgia [Unknown]
  - Swelling [Unknown]
  - Pain [Unknown]
  - Drug hypersensitivity [Unknown]
  - Erythema [Unknown]
  - Chest pain [Unknown]
  - Hyperventilation [Unknown]
  - Tenderness [Unknown]
  - Headache [Unknown]
  - Fatigue [Unknown]
  - Sleep disorder [Unknown]
  - Weight increased [Unknown]
  - Dental discomfort [Unknown]
  - Dry mouth [Unknown]
  - Musculoskeletal stiffness [Unknown]
  - Alopecia [Unknown]
